FAERS Safety Report 12222027 (Version 1)
Quarter: 2016Q1

REPORT INFORMATION
  Report Type: Spontaneous
  Country: US (occurrence: US)
  Receive Date: 20160330
  Receipt Date: 20160330
  Transmission Date: 20160526
  Serious: No
  Sender: FDA-Public Use
  Company Number: US-MYLANLABS-2015M1017434

PATIENT
  Sex: Male

DRUGS (1)
  1. FENTANYL TRANSDERMAL SYSTEM [Suspect]
     Active Substance: FENTANYL
     Indication: PAIN
     Dosage: 50 ?G, QH, CHANGES Q 72H
     Route: 062

REACTIONS (6)
  - Application site pruritus [Not Recovered/Not Resolved]
  - Application site scar [Not Recovered/Not Resolved]
  - Application site erythema [Not Recovered/Not Resolved]
  - Application site papules [Not Recovered/Not Resolved]
  - Scab [Not Recovered/Not Resolved]
  - Reaction to drug excipients [Not Recovered/Not Resolved]
